FAERS Safety Report 15522575 (Version 1)
Quarter: 2018Q4

REPORT INFORMATION
  Report Type: Spontaneous
  Country: US (occurrence: US)
  Receive Date: 20181013
  Receipt Date: 20181013
  Transmission Date: 20190205
  Serious: Yes (Other)
  Sender: FDA-Public Use
  Company Number: None

PATIENT
  Age: 72 Year
  Sex: Female
  Weight: 81.65 kg

DRUGS (2)
  1. OMEGA-3-ACID ETHYL ESTERS. [Suspect]
     Active Substance: OMEGA-3-ACID ETHYL ESTERS
  2. OMEGA-3 ACID ESTERS 1G-05/05/2018 - 05/10/2018 [Concomitant]

REACTIONS (5)
  - Scab [None]
  - Skin laceration [None]
  - Skin ulcer [None]
  - Erythema [None]
  - Skin exfoliation [None]

NARRATIVE: CASE EVENT DATE: 20180510
